FAERS Safety Report 23187649 (Version 2)
Quarter: 2023Q4

REPORT INFORMATION
  Report Type: Report from Study
  Country: KR (occurrence: KR)
  Receive Date: 20231115
  Receipt Date: 20231220
  Transmission Date: 20240110
  Serious: Yes (Other)
  Sender: FDA-Public Use
  Company Number: KR-TAKEDA-2023TUS110134

PATIENT
  Sex: Male

DRUGS (17)
  1. BRIGATINIB [Suspect]
     Active Substance: BRIGATINIB
     Indication: Non-small cell lung cancer
     Dosage: 90 MILLIGRAM, QD
     Route: 065
     Dates: start: 20210416, end: 20210422
  2. BRIGATINIB [Suspect]
     Active Substance: BRIGATINIB
     Dosage: 180 MILLIGRAM, QD
     Route: 065
     Dates: start: 20210423
  3. NORVASC [Concomitant]
     Active Substance: AMLODIPINE BESYLATE
     Indication: Hypertension
     Dosage: 5 MILLIGRAM
     Route: 048
     Dates: start: 20210331, end: 20210502
  4. MAGNESIUM HYDROXIDE [Concomitant]
     Active Substance: MAGNESIUM HYDROXIDE
     Indication: Constipation prophylaxis
     Dosage: 500 MILLIGRAM
     Route: 048
     Dates: start: 20210316, end: 202105
  5. URSODIOL [Concomitant]
     Active Substance: URSODIOL
     Indication: Prophylaxis
     Dosage: 400 MILLIGRAM
     Route: 048
     Dates: start: 20210320, end: 20210707
  6. NEREXONE SR [Concomitant]
     Indication: Spinal disorder
     Dosage: UNK
     Route: 048
     Dates: start: 20210401
  7. LYRICA [Concomitant]
     Active Substance: PREGABALIN
     Indication: Spinal disorder
     Dosage: 150 MILLIGRAM
     Route: 048
     Dates: start: 20210402
  8. FENTANYL [Concomitant]
     Active Substance: FENTANYL\FENTANYL CITRATE
     Indication: Prophylaxis
     Dosage: UNK
     Route: 023
     Dates: start: 20210419
  9. ACTIQ [Concomitant]
     Active Substance: FENTANYL CITRATE
     Indication: Pain
     Dosage: 200 MICROGRAM
     Route: 048
     Dates: start: 20210422
  10. CNU [Concomitant]
     Indication: Liver function test increased
     Dosage: UNK
     Route: 048
     Dates: start: 20210708
  11. Godex [Concomitant]
     Indication: Liver function test increased
     Dosage: UNK
     Route: 048
     Dates: start: 20210930
  12. XARELTO [Concomitant]
     Active Substance: RIVAROXABAN
     Indication: Pulmonary embolism
     Dosage: 20 MILLIGRAM
     Route: 048
     Dates: start: 20211220
  13. LOSARTAN POTASSIUM [Concomitant]
     Active Substance: LOSARTAN POTASSIUM
     Indication: Hypertension
     Dosage: 50 MILLIGRAM
     Route: 048
     Dates: start: 20210503
  14. TWOLION [Concomitant]
     Indication: Pruritus
     Dosage: UNK
     Route: 048
     Dates: start: 20210930
  15. ACETAMINOPHEN\TRAMADOL [Concomitant]
     Active Substance: ACETAMINOPHEN\TRAMADOL
     Indication: Back pain
     Dosage: UNK
     Route: 048
     Dates: start: 20210416, end: 20210418
  16. Trisone kit [Concomitant]
     Indication: Prophylaxis
     Dosage: UNK
     Route: 042
     Dates: start: 20210416, end: 20210419
  17. HERBALS [Concomitant]
     Active Substance: HERBALS
     Dosage: UNK
     Route: 048
     Dates: start: 20210416

REACTIONS (1)
  - Neuromyopathy [Recovering/Resolving]

NARRATIVE: CASE EVENT DATE: 20210503
